FAERS Safety Report 4673466-X (Version None)
Quarter: 2005Q2

REPORT INFORMATION
  Report Type: 
  Country: None (occurrence: None)
  Receive Date: 20050525
  Receipt Date: 20050519
  Transmission Date: 20051028
  Serious: Yes (Hospitalization)
  Sender: FDA-Public Use
  Company Number: FR-GLAXOSMITHKLINE-B0381911A

PATIENT
  Age: 40 Year
  Sex: Male
  Weight: 96 kg

DRUGS (1)
  1. ZYBAN [Suspect]
     Dosage: 450MG PER DAY
     Route: 048
     Dates: end: 20050206

REACTIONS (8)
  - AMNESIA [None]
  - CONVULSIVE THRESHOLD LOWERED [None]
  - DYSKINESIA [None]
  - GRAND MAL CONVULSION [None]
  - HYPERTONIA [None]
  - LOSS OF CONSCIOUSNESS [None]
  - MALAISE [None]
  - POSTICTAL STATE [None]
